FAERS Safety Report 5589770-7 (Version None)
Quarter: 2008Q1

REPORT INFORMATION
  Report Type: 
  Country: None (occurrence: None)
  Receive Date: 20080114
  Receipt Date: 20080108
  Transmission Date: 20080703
  Serious: Yes (Life-Threatening, Hospitalization)
  Sender: FDA-Public Use
  Company Number: PHEH2008US00574

PATIENT
  Age: 94 Year
  Sex: Female
  Weight: 48.979 kg

DRUGS (1)
  1. RECLAST [Suspect]
     Indication: OSTEOPOROSIS
     Dosage: 5 MG, ONCE YEARLY
     Dates: start: 20071214

REACTIONS (5)
  - ASTHENIA [None]
  - BLOOD CALCIUM INCREASED [None]
  - DEHYDRATION [None]
  - ORAL INTAKE REDUCED [None]
  - URINARY TRACT INFECTION [None]
